FAERS Safety Report 18860548 (Version 1)
Quarter: 2021Q1

REPORT INFORMATION
  Report Type: Spontaneous
  Country: US (occurrence: US)
  Receive Date: 20210208
  Receipt Date: 20210208
  Transmission Date: 20210420
  Serious: No
  Sender: FDA-Public Use
  Company Number: US-LUPIN PHARMACEUTICALS INC.-2021-01348

PATIENT
  Age: 65 Year
  Sex: Male

DRUGS (5)
  1. MORPHINE [Suspect]
     Active Substance: MORPHINE
     Indication: PRODUCT USED FOR UNKNOWN INDICATION
     Dosage: UNK
     Route: 037
  2. GABAPENTIN. [Suspect]
     Active Substance: GABAPENTIN
     Indication: PRODUCT USED FOR UNKNOWN INDICATION
     Dosage: UNK
     Route: 065
  3. ZICONOTIDE [Suspect]
     Active Substance: ZICONOTIDE
     Indication: PRODUCT USED FOR UNKNOWN INDICATION
     Dosage: 1.1 MICROGRAM, QD?BOLUS
     Route: 037
  4. FENTANYL. [Concomitant]
     Active Substance: FENTANYL
     Indication: PRODUCT USED FOR UNKNOWN INDICATION
     Dosage: 600 MICROGRAM, QD?BOLUS
     Route: 037
  5. ZICONOTIDE [Suspect]
     Active Substance: ZICONOTIDE
     Dosage: 2.4 MICROGRAM, QD?BOLUS
     Route: 037

REACTIONS (7)
  - Myalgia [Recovered/Resolved]
  - Arthralgia [Unknown]
  - Glomerular filtration rate decreased [Unknown]
  - Night sweats [Unknown]
  - Blood creatinine increased [Unknown]
  - Blood creatine phosphokinase increased [Recovering/Resolving]
  - Confusional state [Recovered/Resolved]
